FAERS Safety Report 7854714-1 (Version None)
Quarter: 2011Q4

REPORT INFORMATION
  Report Type: 
  Country: None (occurrence: None)
  Receive Date: 20111026
  Receipt Date: 20110707
  Transmission Date: 20120403
  Serious: No
  Sender: FDA-Public Use
  Company Number: US-MUTUAL PHARMACEUTICAL COMPANY, INC.-CLCY20110080

PATIENT
  Sex: Female
  Weight: 58.112 kg

DRUGS (4)
  1. VITAMIN D 50000 UNITS [Concomitant]
     Indication: VITAMIN D DEFICIENCY
     Route: 048
  2. LISINOPRIL [Concomitant]
     Indication: HYPERTENSION
     Route: 048
     Dates: start: 19960101
  3. COLCRYS [Suspect]
     Indication: GOUT
     Route: 048
     Dates: start: 20110430, end: 20110624
  4. ALLOPURINOL [Concomitant]
     Indication: GOUT
     Route: 048
     Dates: start: 20110601

REACTIONS (1)
  - DIARRHOEA [None]
